FAERS Safety Report 14366812 (Version 4)
Quarter: 2018Q4

REPORT INFORMATION
  Report Type: Report from Study
  Country: DE (occurrence: DE)
  Receive Date: 20180109
  Receipt Date: 20181001
  Transmission Date: 20190204
  Serious: Yes (Hospitalization, Other)
  Sender: FDA-Public Use
  Company Number: DE-PFIZER INC-2018005309

PATIENT
  Age: 77 Year
  Sex: Male
  Weight: 92 kg

DRUGS (30)
  1. ENTRESTO [Suspect]
     Active Substance: SACUBITRIL\VALSARTAN
     Dosage: 400 MG, DAILY
     Route: 048
     Dates: start: 20160504, end: 20160726
  2. ENTRESTO [Suspect]
     Active Substance: SACUBITRIL\VALSARTAN
     Dosage: 200 MG, DAILY
     Route: 048
     Dates: start: 20160727
  3. ALLOPURINOL HEXAL [Concomitant]
     Active Substance: ALLOPURINOL
     Dosage: UNK
  4. CARVEDILOL HEXAL [Suspect]
     Active Substance: CARVEDILOL
     Indication: CARDIAC FAILURE
     Dosage: 0.5 DF, 1X/DAY
     Route: 065
     Dates: start: 20161019, end: 20161101
  5. ALDACTONE [Concomitant]
     Active Substance: SPIRONOLACTONE
     Dosage: UNK
  6. CARVEDILOL. [Concomitant]
     Active Substance: CARVEDILOL
     Indication: CARDIAC FAILURE
     Dosage: UNK
     Dates: end: 20161023
  7. SALBUTAMOL-RATIOPHARM N [Concomitant]
     Dosage: UNK
     Dates: start: 20161014
  8. BISOPROLOL RATIOPHARM [Concomitant]
     Active Substance: BISOPROLOL
     Dosage: UNK
     Dates: start: 20161102
  9. ALLOHEXAL [Concomitant]
     Dosage: UNK
  10. AMIODARONE HCL [Suspect]
     Active Substance: AMIODARONE HYDROCHLORIDE
     Indication: CARDIAC FAILURE
  11. ENTRESTO [Suspect]
     Active Substance: SACUBITRIL\VALSARTAN
     Indication: CARDIAC FAILURE CHRONIC
     Dosage: 100 MG, DAILY
     Route: 048
     Dates: start: 20160311, end: 20160503
  12. URAPIDIL [Concomitant]
     Active Substance: URAPIDIL
     Dosage: UNK
     Dates: start: 20161215, end: 20161215
  13. TORASEMID HEXAL [Concomitant]
     Dosage: UNK
  14. AMLODIPIN [Concomitant]
     Active Substance: AMLODIPINE BESYLATE
     Dosage: UNK
  15. ELIQUIS [Concomitant]
     Active Substance: APIXABAN
     Dosage: UNK
  16. SPIRIVA [Concomitant]
     Active Substance: TIOTROPIUM BROMIDE MONOHYDRATE
     Dosage: UNK
     Dates: start: 20161018
  17. BISOPROLOL FUMARATE. [Concomitant]
     Active Substance: BISOPROLOL FUMARATE
     Dosage: UNK
     Dates: start: 20161102
  18. AMLODIPINE [Concomitant]
     Active Substance: AMLODIPINE BESYLATE
     Dosage: UNK
  19. AMIODARONE HCL [Suspect]
     Active Substance: AMIODARONE HYDROCHLORIDE
     Indication: SINUS BRADYCARDIA
     Dosage: UNK
     Route: 065
  20. CARVEDILOL HEXAL [Suspect]
     Active Substance: CARVEDILOL
     Indication: SINUS BRADYCARDIA
     Dosage: 0.5 DF, 1X/DAY
     Route: 048
     Dates: start: 2016, end: 20161018
  21. TORASEMIDE [Concomitant]
     Active Substance: TORSEMIDE
     Dosage: UNK
     Dates: start: 20161018, end: 20161027
  22. CARVEDILOL. [Concomitant]
     Active Substance: CARVEDILOL
     Dosage: UNK
     Dates: start: 20170111, end: 20170321
  23. AMLODIPIN [Concomitant]
     Active Substance: AMLODIPINE BESYLATE
     Dosage: UNK
  24. FURORESE [Concomitant]
     Active Substance: FUROSEMIDE
     Dosage: UNK
  25. ENTRESTO [Suspect]
     Active Substance: SACUBITRIL\VALSARTAN
     Dosage: 200 MG, DAILY
     Route: 048
     Dates: start: 20161002
  26. TORASEMIDE [Concomitant]
     Active Substance: TORSEMIDE
     Dosage: UNK
     Dates: start: 20161002
  27. SIMVASTATIN - 1 A PHARMA [Concomitant]
     Dosage: UNK
  28. ASPIRIN. [Concomitant]
     Active Substance: ASPIRIN
     Dosage: UNK
  29. TORASEMIDE [Concomitant]
     Active Substance: TORSEMIDE
     Dosage: UNK
     Dates: start: 20161014
  30. SPIRONOLACTONE. [Concomitant]
     Active Substance: SPIRONOLACTONE
     Dosage: UNK

REACTIONS (23)
  - Dyspnoea [Unknown]
  - Urinary tract infection [Recovering/Resolving]
  - Hypokalaemia [Not Recovered/Not Resolved]
  - Hypothyroidism [Recovering/Resolving]
  - Blood pressure increased [Unknown]
  - Pleural effusion [Unknown]
  - Tachypnoea [Unknown]
  - Blood creatinine increased [Unknown]
  - Wheezing [Unknown]
  - Benign prostatic hyperplasia [Not Recovered/Not Resolved]
  - Dizziness [Not Recovered/Not Resolved]
  - Cardiac failure [Recovered/Resolved]
  - Hypotension [Unknown]
  - Pericardial effusion [Unknown]
  - Sinus bradycardia [Recovered/Resolved]
  - White blood cell count increased [Not Recovered/Not Resolved]
  - Blood potassium decreased [Recovered/Resolved]
  - Respiratory failure [Recovered/Resolved]
  - Atelectasis [Unknown]
  - Pulmonary oedema [Recovered/Resolved]
  - Oedema peripheral [Not Recovered/Not Resolved]
  - Electrocardiogram QT prolonged [Recovered/Resolved]
  - Acute kidney injury [Not Recovered/Not Resolved]

NARRATIVE: CASE EVENT DATE: 20161018
